FAERS Safety Report 6543323-2 (Version None)
Quarter: 2010Q1

REPORT INFORMATION
  Report Type: 
  Country: None (occurrence: None)
  Receive Date: 20100120
  Receipt Date: 20100115
  Transmission Date: 20100710
  Serious: Yes (Life-Threatening)
  Sender: FDA-Public Use
  Company Number: JP-ROCHE-657397

PATIENT
  Sex: Female
  Weight: 49 kg

DRUGS (24)
  1. TOCILIZUMAB [Suspect]
     Indication: RHEUMATOID ARTHRITIS
     Route: 041
     Dates: start: 20080621, end: 20080621
  2. TOCILIZUMAB [Suspect]
     Route: 041
     Dates: start: 20080719, end: 20080719
  3. TOCILIZUMAB [Suspect]
     Route: 041
     Dates: start: 20080823, end: 20080823
  4. TOCILIZUMAB [Suspect]
     Route: 041
     Dates: start: 20080920, end: 20080920
  5. TOCILIZUMAB [Suspect]
     Route: 041
     Dates: start: 20090117, end: 20090117
  6. TOCILIZUMAB [Suspect]
     Route: 041
     Dates: start: 20090221, end: 20090221
  7. TOCILIZUMAB [Suspect]
     Route: 041
     Dates: start: 20090321, end: 20090321
  8. TOCILIZUMAB [Suspect]
     Route: 041
     Dates: start: 20090418, end: 20090418
  9. TOCILIZUMAB [Suspect]
     Route: 041
     Dates: start: 20090516, end: 20090516
  10. TOCILIZUMAB [Suspect]
     Route: 041
     Dates: start: 20090620, end: 20090620
  11. PREDNISOLONE [Suspect]
     Indication: RHEUMATOID ARTHRITIS
     Route: 048
  12. AZULFIDINE [Concomitant]
     Dosage: FORM REPORTED AS ENTERIC.
     Route: 048
     Dates: end: 20080621
  13. ISCOTIN [Concomitant]
     Route: 048
     Dates: start: 20080622
  14. SELBEX [Concomitant]
     Route: 048
  15. GASTER D [Concomitant]
     Route: 048
  16. CELCOX [Concomitant]
     Dosage: DRUG NAME REPORTED AS CELECOX.
  17. WARFARIN POTASSIUM [Concomitant]
     Dosage: DRUG NAME REPORTED AS WARFARIN.
     Route: 048
     Dates: end: 20080919
  18. WARFARIN POTASSIUM [Concomitant]
     Route: 048
     Dates: start: 20080920
  19. PYDOXAL [Concomitant]
     Route: 048
     Dates: start: 20080622
  20. FELBINAC [Concomitant]
     Dosage: DOSE FORM REPORTED AS TAPE. DRUG NAME REPORTED AS SELTOUCH.
     Route: 061
  21. DALACIN S [Concomitant]
     Route: 042
     Dates: start: 20090901, end: 20090907
  22. ZOSYN [Concomitant]
     Route: 042
     Dates: start: 20090901, end: 20090901
  23. VANCOMYCIN [Concomitant]
     Route: 042
     Dates: start: 20090901, end: 20090904
  24. VANCOMYCIN [Concomitant]
     Route: 042
     Dates: start: 20090905, end: 20090906

REACTIONS (5)
  - BRONCHITIS [None]
  - ERYTHEMA [None]
  - INSOMNIA [None]
  - NECROTISING FASCIITIS [None]
  - SKIN ULCER [None]
